FAERS Safety Report 8601218 (Version 3)
Quarter: 2013Q3

REPORT INFORMATION
  Report Type: Spontaneous
  Country: US (occurrence: US)
  Receive Date: 20120606
  Receipt Date: 20130725
  Transmission Date: 20140515
  Serious: Yes (Death)
  Sender: FDA-Public Use
  Company Number: US-CELGENEUS-163-21660-12060134

PATIENT
  Age: 48 Year
  Sex: Male

DRUGS (1)
  1. ABRAXANE [Suspect]
     Indication: PANCREATIC CARCINOMA METASTATIC
     Dosage: 183 MILLIGRAM
     Route: 041
     Dates: start: 20120116, end: 20120316

REACTIONS (1)
  - Pancreatic carcinoma metastatic [Fatal]
